FAERS Safety Report 8795609 (Version 1)
Quarter: 2012Q4

REPORT INFORMATION
  Report Type: 
  Country: US (occurrence: US)
  Receive Date: 20120919
  Receipt Date: 20120919
  Transmission Date: 20130627
  Serious: Yes (Other)
  Sender: FDA-Public Use
  Company Number: US-PFIZER INC-2012230162

PATIENT
  Age: 43 Year
  Sex: Female
  Weight: 101.6 kg

DRUGS (2)
  1. LIPITOR [Suspect]
     Indication: HYPERCHOLESTEROLAEMIA
     Dosage: UNK
  2. NORVASC [Suspect]
     Indication: HYPERTENSION
     Dosage: UNK

REACTIONS (1)
  - Myocardial infarction [Unknown]
